FAERS Safety Report 6923800-2 (Version None)
Quarter: 2010Q3

REPORT INFORMATION
  Report Type: 
  Country: None (occurrence: None)
  Receive Date: 20100813
  Receipt Date: 20100804
  Transmission Date: 20110219
  Serious: Yes (Death)
  Sender: FDA-Public Use
  Company Number: GXKR2010KR08763

PATIENT
  Age: 72 Year
  Sex: Male

DRUGS (4)
  1. METHYLPREDNISOLONE 4MG TAB [Suspect]
     Indication: ASTHMA
     Dosage: 1 MG/KG, TID
     Route: 042
  2. METHYLPREDNISOLONE 4MG TAB [Suspect]
     Dosage: 1 MG/KG, BID
     Route: 042
  3. METHYLPREDNISOLONE 4MG TAB [Suspect]
     Dosage: 1 MG/KG, QD
     Route: 042
  4. PREDNISONE (NGX) [Suspect]
     Indication: ASTHMA
     Dosage: 10 MG, UNK
     Route: 048

REACTIONS (7)
  - ASPERGILLOSIS [None]
  - COLITIS [None]
  - ENDOTRACHEAL INTUBATION [None]
  - HAEMATOCHEZIA [None]
  - MECHANICAL VENTILATION [None]
  - PNEUMONIA [None]
  - STAPHYLOCOCCAL BACTERAEMIA [None]
